FAERS Safety Report 5166395-9 (Version None)
Quarter: 2006Q4

REPORT INFORMATION
  Report Type: 
  Country: None (occurrence: None)
  Receive Date: 20061129
  Receipt Date: 20061113
  Transmission Date: 20070319
  Serious: Yes (Other)
  Sender: FDA-Public Use
  Company Number: DSA_81495_2005

PATIENT
  Age: 51 Year
  Sex: Male
  Weight: 82.1011 kg

DRUGS (4)
  1. XYREM [Suspect]
     Indication: NARCOLEPSY
     Dosage: 12 G NIGHTLY PO
     Route: 048
     Dates: start: 20060711, end: 20061101
  2. XYREM [Suspect]
     Indication: NARCOLEPSY
     Dosage: DF PO
     Route: 048
     Dates: start: 20050301, end: 20060711
  3. PROVIGIL [Concomitant]
  4. NASONEX [Suspect]

REACTIONS (2)
  - OEDEMA [None]
  - THROMBOSIS [None]
